FAERS Safety Report 15405907 (Version 1)
Quarter: 2018Q3

REPORT INFORMATION
  Report Type: Spontaneous
  Country: GB (occurrence: GB)
  Receive Date: 20180920
  Receipt Date: 20180920
  Transmission Date: 20181010
  Serious: Yes (Other)
  Sender: FDA-Public Use
  Company Number: GB-GILEAD-2018-0363719

PATIENT
  Age: 19 Year
  Sex: Male
  Weight: 55 kg

DRUGS (8)
  1. RALTEGRAVIR. [Suspect]
     Active Substance: RALTEGRAVIR
     Indication: PROPHYLAXIS AGAINST HIV INFECTION
     Dosage: 400 MG, UNK
     Route: 048
  2. FLUCLOXACILLIN [Concomitant]
     Active Substance: FLUCLOXACILLIN
  3. IBUPROFEN. [Concomitant]
     Active Substance: IBUPROFEN
  4. ORAJEL [Concomitant]
     Active Substance: ALLANTOIN\BENZOCAINE\CAMPHOR (NATURAL)\DIMETHICONE\MENTHOL
  5. SERTRALINE [Concomitant]
     Active Substance: SERTRALINE HYDROCHLORIDE
  6. TRUVADA [Suspect]
     Active Substance: EMTRICITABINE\TENOFOVIR DISOPROXIL FUMARATE
     Indication: PROPHYLAXIS AGAINST HIV INFECTION
     Dosage: UNK
     Route: 048
  7. METRONIDAZOLE. [Concomitant]
     Active Substance: METRONIDAZOLE
  8. BENZOCAINE. [Concomitant]
     Active Substance: BENZOCAINE

REACTIONS (4)
  - Emotional poverty [Not Recovered/Not Resolved]
  - Sleep disorder [Unknown]
  - Feeling abnormal [Not Recovered/Not Resolved]
  - Sensory disturbance [Unknown]

NARRATIVE: CASE EVENT DATE: 20180828
